FAERS Safety Report 9086653 (Version 1)
Quarter: 2013Q1

REPORT INFORMATION
  Report Type: Report from Study
  Country: US (occurrence: US)
  Receive Date: 20130131
  Receipt Date: 20130131
  Transmission Date: 20140127
  Serious: Yes (Other)
  Sender: FDA-Public Use
  Company Number: US-ABBOTT-12P-163-0946301-00

PATIENT
  Age: 63 Year
  Sex: Female

DRUGS (7)
  1. HUMIRA 40 MG/0.8 ML PEN [Suspect]
     Indication: RHEUMATOID ARTHRITIS
     Dates: start: 20120308
  2. RELAFEN [Concomitant]
     Indication: RHEUMATOID ARTHRITIS
  3. METHOTREXATE [Concomitant]
     Indication: RHEUMATOID ARTHRITIS
     Dosage: 8 PILLS WEEKLY
  4. AMLODIPINE [Concomitant]
     Indication: BLOOD PRESSURE
     Dosage: 10MG DAILY
  5. BENICAR [Concomitant]
     Indication: BLOOD PRESSURE
     Dosage: 12.5MG DAILY
  6. CRESTOR [Concomitant]
     Indication: BLOOD CHOLESTEROL
     Dosage: 10MG DAILY
  7. BERODUAL METERED-DOSE INHALER [Concomitant]
     Indication: ASTHMA

REACTIONS (10)
  - Chest wall abscess [Unknown]
  - Dermatitis infected [Unknown]
  - Rash [Unknown]
  - Rash [Unknown]
  - Urticaria [Not Recovered/Not Resolved]
  - Rheumatoid arthritis [Unknown]
  - Joint swelling [Unknown]
  - Erythema [Unknown]
  - Joint warmth [Unknown]
  - Wound [Recovered/Resolved]
